FAERS Safety Report 12906207 (Version 2)
Quarter: 2016Q4

REPORT INFORMATION
  Report Type: Spontaneous
  Country: AU (occurrence: AU)
  Receive Date: 20161103
  Receipt Date: 20161207
  Transmission Date: 20170207
  Serious: Yes (Hospitalization)
  Sender: FDA-Public Use
  Company Number: PHHY2016AU148884

PATIENT
  Age: 65 Year
  Sex: Male
  Weight: 93 kg

DRUGS (1)
  1. OFATUMUMAB [Suspect]
     Active Substance: OFATUMUMAB
     Indication: CHRONIC LYMPHOCYTIC LEUKAEMIA
     Dosage: UNK UNK, QMO
     Route: 042
     Dates: start: 20161025, end: 20161025

REACTIONS (2)
  - Pharyngeal oedema [Recovered/Resolved]
  - Oesophageal oedema [Recovered/Resolved]

NARRATIVE: CASE EVENT DATE: 20161025
